FAERS Safety Report 10161660 (Version 1)
Quarter: 2014Q2

REPORT INFORMATION
  Report Type: Spontaneous
  Country: US (occurrence: None)
  Receive Date: 20140508
  Receipt Date: 20140508
  Transmission Date: 20141212
  Serious: No
  Sender: FDA-Public Use
  Company Number: None

PATIENT
  Age: 44 Year
  Sex: Male
  Weight: 95.26 kg

DRUGS (3)
  1. CODEINE PHOSPHATE [Suspect]
     Indication: FIBROMYALGIA
     Dosage: 3 PILLS EVERY THREE HOURS TAKEN BY MOUTH
     Route: 048
  2. CODEINE PHOSPHATE [Suspect]
     Indication: FATIGUE
     Dosage: 3 PILLS EVERY THREE HOURS TAKEN BY MOUTH
     Route: 048
  3. CODEINE PHOSPHATE [Suspect]
     Indication: PAIN
     Dosage: 3 PILLS EVERY THREE HOURS TAKEN BY MOUTH
     Route: 048

REACTIONS (4)
  - Rash generalised [None]
  - Miliaria [None]
  - Insomnia [None]
  - Hallucination [None]
